FAERS Safety Report 8307135-1 (Version None)
Quarter: 2012Q2

REPORT INFORMATION
  Report Type: 
  Country: None (occurrence: None)
  Receive Date: 20120424
  Receipt Date: 20120417
  Transmission Date: 20120825
  Serious: Yes (Hospitalization, Other)
  Sender: FDA-Public Use
  Company Number: FR-PFIZER INC-A02200703264

PATIENT
  Age: 67 Year
  Sex: Male

DRUGS (10)
  1. CISPLATIN [Suspect]
     Indication: CHEMOTHERAPY
     Dosage: 175 MG, 1X/DAY
     Route: 042
     Dates: start: 20070711, end: 20070701
  2. TAXOTERE [Suspect]
     Indication: LARYNGEAL CANCER
     Dosage: 175 MG, 1X/DAY
     Route: 042
     Dates: start: 20070711, end: 20070701
  3. FLUOROURACIL [Suspect]
     Indication: CHEMOTHERAPY
     Dosage: 8740 MG, 1X/DAY
     Route: 042
     Dates: start: 20070711, end: 20070716
  4. SOLU-MEDROL [Suspect]
     Indication: LARYNGEAL CANCER
  5. CISPLATIN [Suspect]
     Indication: LARYNGEAL CANCER
  6. SOLU-MEDROL [Suspect]
     Indication: CHEMOTHERAPY
     Dosage: 60 MG, 1X/DAY
     Route: 040
     Dates: start: 20070711, end: 20070715
  7. TAXOTERE [Suspect]
     Indication: CHEMOTHERAPY
  8. ZOFRAN [Suspect]
     Indication: PREMEDICATION
     Dosage: 8 MG, 1X/DAY
     Route: 040
     Dates: start: 20070711, end: 20070715
  9. PLITICAN [Suspect]
     Indication: PREMEDICATION
     Dosage: 100 MG, 1X/DAY
     Route: 040
     Dates: start: 20070711, end: 20070701
  10. FLUOROURACIL [Suspect]
     Indication: LARYNGEAL CANCER

REACTIONS (6)
  - MUCOSAL INFLAMMATION [None]
  - SEPSIS [None]
  - DIARRHOEA [None]
  - BONE MARROW FAILURE [None]
  - FEBRILE BONE MARROW APLASIA [None]
  - PYREXIA [None]
